FAERS Safety Report 6811824-5 (Version None)
Quarter: 2010Q3

REPORT INFORMATION
  Report Type: 
  Country: None (occurrence: None)
  Receive Date: 20100701
  Receipt Date: 20100625
  Transmission Date: 20110219
  Serious: Yes (Life-Threatening, Hospitalization, Other)
  Sender: FDA-Public Use
  Company Number: HK-JNJFOC-20100607433

PATIENT
  Sex: Male
  Weight: 103 kg

DRUGS (9)
  1. STELARA [Suspect]
     Indication: PSORIASIS
     Route: 058
  2. STELARA [Suspect]
     Route: 058
  3. DAIVOBET [Concomitant]
     Indication: PSORIASIS
     Route: 061
  4. DAIVONEX [Concomitant]
     Indication: PSORIASIS
     Route: 061
  5. SILKIS [Concomitant]
     Indication: PSORIASIS
     Route: 061
  6. ELOMET [Concomitant]
     Indication: PSORIASIS
     Route: 061
  7. POLYTAR AF [Concomitant]
     Indication: PSORIASIS
     Route: 061
  8. AQUEOUS [Concomitant]
     Indication: PSORIASIS
     Route: 061
  9. ORLISTAT [Concomitant]

REACTIONS (5)
  - HAEMATURIA [None]
  - MOUTH HAEMORRHAGE [None]
  - PETECHIAE [None]
  - PURPURA [None]
  - THROMBOCYTOPENIA [None]
